FAERS Safety Report 20132438 (Version 1)
Quarter: 2021Q4

REPORT INFORMATION
  Report Type: Spontaneous
  Country: US (occurrence: US)
  Receive Date: 20211130
  Receipt Date: 20211130
  Transmission Date: 20220303
  Serious: No
  Sender: FDA-Public Use
  Company Number: US-MYLANLABS-2021M1073914

PATIENT
  Sex: Male
  Weight: 73 kg

DRUGS (1)
  1. PROCTOFOAM HC [Suspect]
     Active Substance: HYDROCORTISONE ACETATE\PRAMOXINE HYDROCHLORIDE
     Indication: Haemorrhoids
     Dosage: UNK, BID
     Route: 061
     Dates: start: 20211011, end: 20211011

REACTIONS (3)
  - Product packaging issue [Unknown]
  - Device issue [Unknown]
  - Product dose omission issue [Unknown]
